FAERS Safety Report 5113499-2 (Version None)
Quarter: 2006Q3

REPORT INFORMATION
  Report Type: 
  Country: None (occurrence: None)
  Receive Date: 20060921
  Receipt Date: 20060921
  Transmission Date: 20061208
  Serious: Yes (Hospitalization)
  Sender: FDA-Public Use
  Company Number: None

PATIENT
  Age: 59 Year
  Sex: Male
  Weight: 94.3 kg

DRUGS (2)
  1. CARDIZEM [Suspect]
  2. HYDROCHLOROTHIAZDE TAB [Concomitant]

REACTIONS (1)
  - OEDEMA [None]
